FAERS Safety Report 16667291 (Version 1)
Quarter: 2019Q3

REPORT INFORMATION
  Report Type: Spontaneous
  Country: CA (occurrence: CA)
  Receive Date: 20190805
  Receipt Date: 20190805
  Transmission Date: 20191004
  Serious: Yes (Other)
  Sender: FDA-Public Use
  Company Number: CA-PFIZER INC-2019322174

PATIENT
  Sex: Female

DRUGS (1)
  1. GD-GABAPENTIN [Suspect]
     Active Substance: GABAPENTIN
     Indication: FIBROMYALGIA
     Dosage: UNK

REACTIONS (14)
  - Skin atrophy [Unknown]
  - Micturition disorder [Unknown]
  - Off label use [Unknown]
  - Dry skin [Unknown]
  - Ear disorder [Unknown]
  - Pain [Unknown]
  - Nasal dryness [Unknown]
  - Dry eye [Unknown]
  - Thinking abnormal [Unknown]
  - Dry mouth [Unknown]
  - Product use in unapproved indication [Unknown]
  - Haemorrhage subcutaneous [Unknown]
  - Limb injury [Unknown]
  - Tongue disorder [Unknown]

NARRATIVE: CASE EVENT DATE: 20190724
